FAERS Safety Report 25255986 (Version 1)
Quarter: 2025Q2

REPORT INFORMATION
  Report Type: Spontaneous
  Country: US (occurrence: None)
  Receive Date: 20250429
  Receipt Date: 20250429
  Transmission Date: 20250716
  Serious: Yes (Other)
  Sender: FDA-CTU
  Company Number: None

PATIENT
  Sex: Female
  Weight: 64.35 kg

DRUGS (6)
  1. TIMOLOL MALEATE [Suspect]
     Active Substance: TIMOLOL MALEATE
     Indication: Open angle glaucoma
     Dosage: FREQUENCY : TWICE A DAY;?
     Route: 047
  2. BRIMONIDINE [Suspect]
     Active Substance: BRIMONIDINE TARTRATE
     Indication: Open angle glaucoma
     Dosage: FREQUENCY : 3 TIMES A DAY;?
     Route: 047
  3. TIMOLOL [Concomitant]
     Active Substance: TIMOLOL
  4. BRIMONIDINE [Concomitant]
     Active Substance: BRIMONIDINE TARTRATE
  5. LATANOPROST [Concomitant]
     Active Substance: LATANOPROST
  6. DORZOLAMIDE [Concomitant]
     Active Substance: DORZOLAMIDE

REACTIONS (6)
  - Bradycardia [None]
  - Exercise tolerance decreased [None]
  - Hypersensitivity [None]
  - Iris discolouration [None]
  - Eye irritation [None]
  - Eye irritation [None]
